FAERS Safety Report 7493949-7 (Version None)
Quarter: 2011Q2

REPORT INFORMATION
  Report Type: 
  Country: None (occurrence: None)
  Receive Date: 20110520
  Receipt Date: 20110518
  Transmission Date: 20111010
  Serious: Yes (Hospitalization)
  Sender: FDA-Public Use
  Company Number: US-PFIZER INC-2011108115

PATIENT
  Sex: Female

DRUGS (1)
  1. NARDIL [Suspect]
     Route: 048

REACTIONS (2)
  - NERVOUS SYSTEM DISORDER [None]
  - HYPOTENSION [None]
